FAERS Safety Report 22675328 (Version 5)
Quarter: 2023Q4

REPORT INFORMATION
  Report Type: Spontaneous
  Country: US (occurrence: US)
  Receive Date: 20230706
  Receipt Date: 20231023
  Transmission Date: 20240110
  Serious: Yes (Hospitalization, Other)
  Sender: FDA-Public Use
  Company Number: US-BRISTOL-MYERS SQUIBB COMPANY-2023-093873

PATIENT
  Age: 68 Year
  Sex: Female

DRUGS (2)
  1. LENALIDOMIDE [Suspect]
     Active Substance: LENALIDOMIDE
     Indication: Plasma cell myeloma
     Dosage: TAKE 1 CAPSULE BY MOUTH DAILY ON DAYS 1-14 OF EACH 21 DAY CYCLE.
     Route: 048
  2. LENALIDOMIDE [Suspect]
     Active Substance: LENALIDOMIDE
     Dosage: TAKE 1 CAPSULE BY MOUTH EVERY DAY FOR 2 WEEKS ON THEN 1 WEEK OFF
     Route: 048
     Dates: start: 20230613

REACTIONS (7)
  - Hypotension [Recovered/Resolved]
  - Incorrect product administration duration [Unknown]
  - Off label use [Unknown]
  - Peripheral swelling [Unknown]
  - Platelet count decreased [Unknown]
  - Swelling [Recovering/Resolving]
  - Fall [Unknown]
